FAERS Safety Report 8915451 (Version 3)
Quarter: 2013Q1

REPORT INFORMATION
  Report Type: Spontaneous
  Country: IT (occurrence: IT)
  Receive Date: 20121116
  Receipt Date: 20130115
  Transmission Date: 20140127
  Serious: Yes (Other)
  Sender: FDA-Public Use
  Company Number: IT-BAXTER-2012BAX023394

PATIENT
  Age: 10 Year
  Sex: Male

DRUGS (6)
  1. HOLOXAN [Suspect]
     Indication: RHABDOMYOSARCOMA
     Route: 042
     Dates: start: 20121105, end: 20121106
  2. VINCRISTINE [Concomitant]
     Indication: PRODUCT USED FOR UNKNOWN INDICATION
     Route: 042
     Dates: start: 20121105, end: 20121105
  3. MESNA [Concomitant]
     Indication: PRODUCT USED FOR UNKNOWN INDICATION
     Route: 065
     Dates: start: 20121105, end: 20121105
  4. DESAMETASONE FOSF [Concomitant]
     Indication: ANTIEMETIC SUPPORTIVE CARE
     Route: 042
     Dates: start: 20121105
  5. ONDANSETRON [Concomitant]
     Indication: ANTIEMETIC SUPPORTIVE CARE
     Route: 042
     Dates: start: 20121105
  6. COSMEGEN [Concomitant]
     Indication: PRODUCT USED FOR UNKNOWN INDICATION
     Route: 042
     Dates: start: 20121105, end: 20121105

REACTIONS (1)
  - Bronchospasm [Recovered/Resolved]
